FAERS Safety Report 10641374 (Version 1)
Quarter: 2014Q4

REPORT INFORMATION
  Report Type: Report from Study
  Country: BR (occurrence: BR)
  Receive Date: 20141209
  Receipt Date: 20141209
  Transmission Date: 20150529
  Serious: Yes (Other)
  Sender: FDA-Public Use
  Company Number: PHHY2014BR160272

PATIENT
  Sex: Female
  Weight: 55 kg

DRUGS (6)
  1. LOSARTAN [Suspect]
     Active Substance: LOSARTAN
     Indication: HYPERTENSION
  2. LOSARTAN [Suspect]
     Active Substance: LOSARTAN
     Indication: CARDIAC DISORDER
     Dosage: 50 MG, BID (IN THE MORNING AND IN AFTERNOON)
     Route: 065
  3. PURAN [Suspect]
     Active Substance: LEVOTHYROXINE SODIUM
     Indication: BONE DISORDER
     Dosage: 5 MG, QW (BEFORE LUNCH)
     Route: 065
  4. LOSARTAN [Suspect]
     Active Substance: LOSARTAN
     Indication: BONE DISORDER
  5. EXFORGE HCT [Suspect]
     Active Substance: AMLODIPINE BESYLATE\HYDROCHLOROTHIAZIDE\VALSARTAN
     Indication: HYPERTENSION
     Dosage: 1 DF, QD
     Route: 065
     Dates: start: 20140815
  6. ATENOLOL. [Suspect]
     Active Substance: ATENOLOL
     Indication: PRODUCT USED FOR UNKNOWN INDICATION
     Dosage: 50 MG, BID
     Route: 065
     Dates: end: 20141130

REACTIONS (4)
  - Hypotension [Unknown]
  - Bladder disorder [Recovering/Resolving]
  - Stress [Recovering/Resolving]
  - Blood pressure increased [Unknown]
